FAERS Safety Report 14845837 (Version 1)
Quarter: 2018Q2

REPORT INFORMATION
  Report Type: Spontaneous
  Country: GB (occurrence: GB)
  Receive Date: 20180504
  Receipt Date: 20180504
  Transmission Date: 20180711
  Serious: Yes (Disabling)
  Sender: FDA-Public Use
  Company Number: GB-ALKEM LABORATORIES LIMITED-GB-ALKEM-2018-02925

PATIENT
  Sex: Male

DRUGS (6)
  1. ACCORD HEALTHCARE QUETIAPINE [Suspect]
     Active Substance: QUETIAPINE FUMARATE
     Dosage: 250 MG, UNK
     Route: 065
  2. QUETIAPINE FUMARATE. [Suspect]
     Active Substance: QUETIAPINE FUMARATE
     Indication: PRODUCT USED FOR UNKNOWN INDICATION
     Dosage: UNKNOWN
     Route: 065
  3. ACCORD HEALTHCARE QUETIAPINE [Suspect]
     Active Substance: QUETIAPINE FUMARATE
     Indication: PRODUCT USED FOR UNKNOWN INDICATION
     Dosage: 450 MG, UNK
     Route: 065
  4. ACCORD HEALTHCARE QUETIAPINE [Suspect]
     Active Substance: QUETIAPINE FUMARATE
     Dosage: 300 MG, UNK
     Route: 065
  5. CARBAMAZEPINE. [Concomitant]
     Active Substance: CARBAMAZEPINE
     Indication: PRODUCT USED FOR UNKNOWN INDICATION
     Dosage: UNKNOWN
     Route: 065
  6. QUETIAPINE FUMARATE. [Suspect]
     Active Substance: QUETIAPINE FUMARATE
     Dosage: 200 MG, UNK
     Route: 065

REACTIONS (13)
  - Nausea [Recovered/Resolved]
  - Withdrawal syndrome [Unknown]
  - Nightmare [Unknown]
  - Condition aggravated [Unknown]
  - Fatigue [Unknown]
  - Rebound psychosis [Unknown]
  - Insomnia [Unknown]
  - Disinhibition [Unknown]
  - Product substitution issue [Unknown]
  - Balance disorder [Recovered/Resolved]
  - Disturbance in attention [Unknown]
  - Feeling abnormal [Unknown]
  - Agitation [Unknown]

NARRATIVE: CASE EVENT DATE: 201701
